FAERS Safety Report 9238560 (Version 1)
Quarter: 2013Q2

REPORT INFORMATION
  Report Type: Not Available
  Country: CN (occurrence: CN)
  Receive Date: 20130418
  Receipt Date: 20130418
  Transmission Date: 20140414
  Serious: Yes (Hospitalization, Other)
  Sender: FDA-Public Use
  Company Number: CN-ASTELLAS-2013JP005010

PATIENT
  Sex: Male
  Weight: 79 kg

DRUGS (6)
  1. TACROLIMUS [Suspect]
     Indication: LIVER TRANSPLANT
     Dosage: 1 MG, BID
     Route: 048
     Dates: start: 20091230, end: 20110115
  2. RIFAMPICIN [Concomitant]
     Dosage: UNK
     Route: 048
     Dates: start: 2010, end: 201006
  3. ISONIAZIDE [Concomitant]
     Dosage: UNK
     Route: 065
     Dates: start: 2010
  4. MYCOPHENOLATE MOFETIL [Concomitant]
     Dosage: UNK
     Route: 065
     Dates: start: 20091230, end: 201003
  5. PREDNISONE [Concomitant]
     Dosage: UNK
     Route: 065
     Dates: start: 20091230
  6. MYCOPHENOLATE MOFETIL [Concomitant]
     Dosage: UNK
     Route: 048
     Dates: start: 201003

REACTIONS (7)
  - Drug ineffective [Unknown]
  - Liver transplant rejection [Not Recovered/Not Resolved]
  - Drug level increased [Not Recovered/Not Resolved]
  - Toxicity to various agents [Not Recovered/Not Resolved]
  - Blood bilirubin increased [Not Recovered/Not Resolved]
  - Bone tuberculosis [Not Recovered/Not Resolved]
  - Liver disorder [Not Recovered/Not Resolved]
